FAERS Safety Report 12721140 (Version 1)
Quarter: 2016Q3

REPORT INFORMATION
  Report Type: Spontaneous
  Country: US (occurrence: US)
  Receive Date: 20160906
  Receipt Date: 20160906
  Transmission Date: 20161109
  Serious: No
  Sender: FDA-Public Use
  Company Number: None

PATIENT
  Age: 46 Year
  Sex: Female
  Weight: 79.9 kg

DRUGS (8)
  1. MELATONIN [Concomitant]
     Active Substance: MELATONIN
  2. MORPHINE [Concomitant]
     Active Substance: MORPHINE
  3. SAM  E [Concomitant]
  4. ZOLPIDEM [Suspect]
     Active Substance: ZOLPIDEM\ZOLPIDEM TARTRATE
     Indication: INSOMNIA
     Dates: start: 20150401
  5. VALACYCLOVIR [Concomitant]
     Active Substance: VALACYCLOVIR HYDROCHLORIDE
  6. TRAZODONE [Concomitant]
     Active Substance: TRAZODONE HYDROCHLORIDE
  7. PROZAC [Concomitant]
     Active Substance: FLUOXETINE HYDROCHLORIDE
  8. INTRATHECAL PUMP [Concomitant]

REACTIONS (6)
  - Somnambulism [None]
  - Depression [None]
  - Amnesia [None]
  - Disturbance in attention [None]
  - Confusional state [None]
  - Weight increased [None]

NARRATIVE: CASE EVENT DATE: 20160601
